FAERS Safety Report 26164031 (Version 2)
Quarter: 2025Q4

REPORT INFORMATION
  Report Type: Spontaneous
  Country: US (occurrence: US)
  Receive Date: 20251216
  Receipt Date: 20251230
  Transmission Date: 20260118
  Serious: No
  Sender: INCYTE
  Company Number: US-EVENT-005174

PATIENT

DRUGS (2)
  1. OPZELURA [Suspect]
     Active Substance: RUXOLITINIB PHOSPHATE
     Indication: Lichen planus
     Dosage: UNK (APPLIED TWICE A DAY)
     Route: 065
  2. OPZELURA [Suspect]
     Active Substance: RUXOLITINIB PHOSPHATE
     Dosage: UNK
     Route: 065

REACTIONS (4)
  - Lichen planus [Unknown]
  - Product packaging quantity issue [Unknown]
  - Product availability issue [Unknown]
  - Off label use [Not Recovered/Not Resolved]
